FAERS Safety Report 10037764 (Version 1)
Quarter: 2014Q1

REPORT INFORMATION
  Report Type: Spontaneous
  Country: US (occurrence: US)
  Receive Date: 20140326
  Receipt Date: 20140326
  Transmission Date: 20141002
  Serious: No
  Sender: FDA-Public Use
  Company Number: US-PFIZER INC-2014085003

PATIENT
  Age: 50 Year
  Sex: Female
  Weight: 90.7 kg

DRUGS (4)
  1. CHANTIX [Suspect]
     Indication: SMOKING CESSATION THERAPY
     Dosage: UNK
  2. CHANTIX [Suspect]
     Dosage: UNK
     Dates: start: 201403, end: 201403
  3. CHANTIX [Suspect]
     Dosage: 1 MG, UNK
     Dates: start: 201403
  4. XANAX [Concomitant]
     Indication: ANXIETY
     Dosage: 2 MG, 3X/DAY

REACTIONS (2)
  - Drug ineffective [Unknown]
  - Panic disorder [Unknown]
